FAERS Safety Report 7399888-4 (Version None)
Quarter: 2011Q2

REPORT INFORMATION
  Report Type: 
  Country: None (occurrence: None)
  Receive Date: 20110405
  Receipt Date: 20110405
  Transmission Date: 20111010
  Serious: Yes (Other)
  Sender: FDA-Public Use
  Company Number: None

PATIENT
  Age: 29 Year
  Sex: Female
  Weight: 43.0917 kg

DRUGS (1)
  1. VIVAGLOBIN [Suspect]
     Indication: IMMUNODEFICIENCY COMMON VARIABLE
     Dosage: 3.2 GM/20 ML TWICE WEEKLY SQ
     Route: 058
     Dates: start: 20110312, end: 20110330

REACTIONS (1)
  - MENINGITIS ASEPTIC [None]
